FAERS Safety Report 4787612-0 (Version None)
Quarter: 2005Q4

REPORT INFORMATION
  Report Type: 
  Country: None (occurrence: None)
  Receive Date: 20051003
  Receipt Date: 20050921
  Transmission Date: 20060501
  Serious: Yes (Other)
  Sender: FDA-Public Use
  Company Number: 2005125284

PATIENT
  Age: 29 Year
  Sex: Female
  Weight: 94 kg

DRUGS (1)
  1. MEDROXYPROGESTERONE ACETATE [Suspect]
     Indication: CONTRACEPTION
     Dosage: (FIRST INJECTION), INTRAMUSCULAR
     Route: 030
     Dates: start: 20011101, end: 20011101

REACTIONS (1)
  - MULTIPLE SCLEROSIS [None]
